FAERS Safety Report 6223172 (Version 1)
Quarter: 2020Q3

REPORT INFORMATION
  Report Type: Spontaneous
  Country: DE (occurrence: DE)
  Receive Date: 20070125
  Receipt Date: 20070125
  Transmission Date: 20201104
  Serious: Yes (Other)
  Sender: FDA-Public Use
  Company Number: DE-ROCHE-472082

PATIENT
  Age: 70 Year
  Sex: Male

DRUGS (1)
  1. IBANDRONIC ACID. [Suspect]
     Active Substance: IBANDRONIC ACID
     Indication: OSTEOLYSIS
     Route: 048
     Dates: start: 19990715, end: 20061115

REACTIONS (1)
  - Myositis ossificans [Not Recovered/Not Resolved]

NARRATIVE: CASE EVENT DATE: 20061026
